FAERS Safety Report 10732175 (Version 1)
Quarter: 2015Q1

REPORT INFORMATION
  Report Type: Spontaneous
  Country: US (occurrence: US)
  Receive Date: 20150123
  Receipt Date: 20150123
  Transmission Date: 20150721
  Serious: Yes (Hospitalization)
  Sender: FDA-Public Use
  Company Number: US-SUN PHARMACEUTICAL INDUSTRIES LTD-2015SUN00195

PATIENT

DRUGS (9)
  1. PYRAZINAMIDE. [Suspect]
     Active Substance: PYRAZINAMIDE
     Indication: TUBERCULOSIS
     Dosage: 1500 MG, DAILY
     Route: 048
  2. ISONIAZID 300MG AND PYRIDOXINE 25MG [Concomitant]
     Indication: TUBERCULOSIS
     Dosage: DAILY
     Route: 048
  3. MYAMBUTOL [Concomitant]
     Active Substance: ETHAMBUTOL HYDROCHLORIDE
     Indication: TUBERCULOSIS
     Dosage: 1200 MG, DAILY
     Route: 048
  4. ALLOPURINOL 100 MG TABLET [Suspect]
     Active Substance: ALLOPURINOL
     Indication: GOUT
     Dosage: 100 MG, BID
     Route: 048
  5. IRON POLYSACCHARIDE [Concomitant]
     Dosage: 150 MG, BID
     Route: 048
  6. REMICADE [Concomitant]
     Active Substance: INFLIXIMAB
     Indication: INFLAMMATORY BOWEL DISEASE
     Dosage: 300 MG, MONTHLY IV INFUSION
     Route: 042
  7. CELLCEPT [Concomitant]
     Active Substance: MYCOPHENOLATE MOFETIL\MYCOPHENOLATE MOFETIL HYDROCHLORIDE
     Indication: IMMUNOSUPPRESSION
     Dosage: 1000 MG, BID
     Route: 048
  8. MYCOBUTIN [Concomitant]
     Active Substance: RIFABUTIN
     Indication: TUBERCULOSIS
     Dosage: 300 MG, DAILY
     Route: 048
  9. PROGRAF [Concomitant]
     Active Substance: TACROLIMUS\TACROLIMUS ANHYDROUS
     Indication: IMMUNOSUPPRESSION
     Dosage: 3 MG, EVERY MORNING AND 4 MG EVERY EVENING
     Route: 048

REACTIONS (3)
  - Paradoxical drug reaction [Recovered/Resolved]
  - Hyperuricaemia [Recovered/Resolved]
  - Urate nephropathy [Recovered/Resolved]
